FAERS Safety Report 5775061-8 (Version None)
Quarter: 2008Q2

REPORT INFORMATION
  Report Type: 
  Country: None (occurrence: None)
  Receive Date: 20080616
  Receipt Date: 20080616
  Transmission Date: 20081010
  Serious: Yes (Other)
  Sender: FDA-Public Use
  Company Number: None

PATIENT
  Age: 25 Year
  Sex: Male
  Weight: 90.7194 kg

DRUGS (3)
  1. EFFEXOR XR [Suspect]
     Indication: BIPOLAR DISORDER
     Dosage: 75 MG. DAILY PO
     Route: 048
     Dates: start: 20070809, end: 20080316
  2. EFFEXOR XR [Suspect]
     Indication: OBSESSIVE-COMPULSIVE DISORDER
     Dosage: 75 MG. DAILY PO
     Route: 048
     Dates: start: 20070809, end: 20080316
  3. LAMICTAL [Concomitant]

REACTIONS (15)
  - ANXIETY [None]
  - CONVULSION [None]
  - DRUG WITHDRAWAL SYNDROME [None]
  - DYSPHAGIA [None]
  - EDUCATIONAL PROBLEM [None]
  - FEAR [None]
  - FEELING ABNORMAL [None]
  - NIGHTMARE [None]
  - PARAESTHESIA [None]
  - PARANOIA [None]
  - RETCHING [None]
  - SOCIAL PROBLEM [None]
  - TARDIVE DYSKINESIA [None]
  - VOMITING [None]
  - WEIGHT DECREASED [None]
